FAERS Safety Report 20367577 (Version 1)
Quarter: 2022Q1

REPORT INFORMATION
  Report Type: Spontaneous
  Country: US (occurrence: US)
  Receive Date: 20220124
  Receipt Date: 20220124
  Transmission Date: 20220423
  Serious: No
  Sender: FDA-Public Use
  Company Number: US-AMGEN-USASP2022006620

PATIENT
  Sex: Female

DRUGS (1)
  1. REPATHA [Suspect]
     Active Substance: EVOLOCUMAB
     Indication: Peripheral vascular disorder
     Dosage: 140 MILLIGRAM, Q2WK
     Route: 058
     Dates: start: 20190617

REACTIONS (1)
  - Product dose omission issue [Unknown]
